FAERS Safety Report 6149669-4 (Version None)
Quarter: 2009Q2

REPORT INFORMATION
  Report Type: 
  Country: None (occurrence: None)
  Receive Date: 20090407
  Receipt Date: 20090407
  Transmission Date: 20091009
  Serious: Yes (Hospitalization)
  Sender: FDA-Public Use
  Company Number: None

PATIENT
  Age: 70 Year
  Sex: Female
  Weight: 70 kg

DRUGS (1)
  1. DURAGESIC-25 [Suspect]
     Indication: PAIN
     Dosage: 25 MCG Q72H TOP
     Route: 061

REACTIONS (2)
  - BALANCE DISORDER [None]
  - FALL [None]
